FAERS Safety Report 21579409 (Version 1)
Quarter: 2022Q4

REPORT INFORMATION
  Report Type: Spontaneous
  Country: US (occurrence: US)
  Receive Date: 20221110
  Receipt Date: 20221110
  Transmission Date: 20230113
  Serious: Yes (Hospitalization, Other)
  Sender: FDA-Public Use
  Company Number: US-002147023-NVSC2022US249469

PATIENT
  Age: 58 Year
  Sex: Female

DRUGS (19)
  1. RECLAST [Suspect]
     Active Substance: ZOLEDRONIC ACID
     Indication: Osteopenia
     Dosage: 1 DOSAGE FORM
     Route: 065
     Dates: start: 20221024
  2. HYALURONATE SODIUM [Concomitant]
     Active Substance: HYALURONATE SODIUM
     Indication: Product used for unknown indication
     Route: 065
  3. PREDNISONE [Concomitant]
     Active Substance: PREDNISONE
     Indication: Arthritis
     Dosage: 1 DOSAGE FORM, QD
     Route: 065
  4. PREDNISONE [Concomitant]
     Active Substance: PREDNISONE
     Dosage: 2.5 MG
     Route: 065
  5. KEFLEX [Concomitant]
     Active Substance: CEPHALEXIN
     Indication: Product used for unknown indication
     Dosage: 500 MG, QD (FOR 5 DAYS)
     Route: 065
  6. VERAPAMIL [Concomitant]
     Active Substance: VERAPAMIL HYDROCHLORIDE
     Indication: Supraventricular tachycardia
     Dosage: 1 DOSAGE FORM (Q PM, STARTED IN EARLY 90^S)
     Route: 065
  7. OMEPRAZOLE [Concomitant]
     Active Substance: OMEPRAZOLE
     Indication: Gastrooesophageal reflux disease
     Dosage: 1 DOSAGE FORM (03-19, Q PM)
     Route: 065
  8. OMEPRAZOLE [Concomitant]
     Active Substance: OMEPRAZOLE
     Indication: Gastrooesophageal reflux disease
  9. MYRBETRIQ [Concomitant]
     Active Substance: MIRABEGRON
     Indication: Hypertonic bladder
     Dosage: 1 DOSAGE FORM (Q AM, STARTED IN 10-19)
     Route: 065
  10. HYDROXYCHLOROQUINE SULFATE [Concomitant]
     Active Substance: HYDROXYCHLOROQUINE SULFATE
     Indication: Arthritis
     Dosage: 1 DOSAGE FORM (STARTED IN 09-20, Q AM)
     Route: 065
  11. ACIDOPHILUS [Concomitant]
     Active Substance: LACTOBACILLUS ACIDOPHILUS
     Indication: Product used for unknown indication
     Dosage: 1 UNK (Q AM STARTED A LONG TIME AGO)
     Route: 065
  12. CALCIUM CITRATE [Concomitant]
     Active Substance: CALCIUM CITRATE
     Indication: Product used for unknown indication
     Dosage: 2 DOSAGE FORM (Q AM + Q PM STARTED A LONG TIME AGO)
     Route: 065
  13. VITAMIN D3 [Concomitant]
     Active Substance: CHOLECALCIFEROL
     Indication: Product used for unknown indication
     Dosage: 2 DOSAGE FORM (Q AM + Q PM STARTED A LONG TIME AGO )
     Route: 065
  14. VITAMIN D3 [Concomitant]
     Active Substance: CHOLECALCIFEROL
     Dosage: 4000 IU, BID ((AM + PM) STARTED A LONG TIME AGO)
     Route: 065
  15. FISH OIL [Concomitant]
     Active Substance: FISH OIL
     Indication: Product used for unknown indication
     Dosage: 1 DOSAGE FORM (Q AM STARTED A LONG TIME AGO)
     Route: 065
  16. VITAMIN B12 [Concomitant]
     Active Substance: CYANOCOBALAMIN
     Indication: Product used for unknown indication
     Dosage: 1 DOSAGE FORM (SL Q SUN + Q WED AM)
     Route: 065
     Dates: start: 2013
  17. VITAMINS [Concomitant]
     Active Substance: VITAMINS
     Indication: Product used for unknown indication
     Dosage: 1 DOSAGE FORM (Q AM)
     Route: 065
     Dates: start: 2013
  18. SENOKOT [Concomitant]
     Active Substance: SENNOSIDES
     Indication: Product used for unknown indication
     Dosage: 1 DOSAGE FORM (QOD AM, STARTED ON 06/22)
     Route: 065
  19. FLONASE [Concomitant]
     Active Substance: FLUTICASONE PROPIONATE
     Indication: Seasonal allergy
     Dosage: UNK, PRN (50 MCG,1 SPRAY/DAY, STARTED 3/22)
     Route: 065

REACTIONS (39)
  - Pain [Unknown]
  - Neck pain [Unknown]
  - Musculoskeletal chest pain [Unknown]
  - Back pain [Unknown]
  - Dyspnoea at rest [Unknown]
  - Dysstasia [Unknown]
  - Syncope [Unknown]
  - Limb discomfort [Unknown]
  - Peripheral swelling [Unknown]
  - Blood pressure decreased [Unknown]
  - Hepatic enzyme increased [Unknown]
  - Protein total decreased [Recovered/Resolved]
  - Blood albumin decreased [Recovered/Resolved]
  - Bilirubin conjugated increased [Unknown]
  - Blood alkaline phosphatase increased [Recovered/Resolved]
  - Aspartate aminotransferase increased [Recovering/Resolving]
  - Alanine aminotransferase increased [Recovering/Resolving]
  - White blood cell count increased [Recovered/Resolved]
  - Neutrophil count increased [Recovered/Resolved]
  - Red blood cell count decreased [Recovering/Resolving]
  - Mean platelet volume decreased [Unknown]
  - Lymphocyte count decreased [Recovered/Resolved]
  - Blood glucose increased [Recovered/Resolved]
  - Glomerular filtration rate decreased [Unknown]
  - pH urine increased [Unknown]
  - Glucose urine present [Unknown]
  - Blood sodium decreased [Recovered/Resolved]
  - Urobilinogen urine increased [Unknown]
  - Carbon dioxide decreased [Recovered/Resolved]
  - Platelet count increased [Unknown]
  - Haematocrit decreased [Recovered/Resolved]
  - Movement disorder [Unknown]
  - Blood calcium decreased [Recovered/Resolved]
  - Arthralgia [Unknown]
  - Asthenia [Unknown]
  - Nausea [Unknown]
  - Joint swelling [Unknown]
  - Dehydration [Unknown]
  - Joint stiffness [Unknown]

NARRATIVE: CASE EVENT DATE: 20221025
